FAERS Safety Report 4520197-2 (Version None)
Quarter: 2004Q4

REPORT INFORMATION
  Report Type: 
  Country: None (occurrence: None)
  Receive Date: 20041202
  Receipt Date: 20041202
  Transmission Date: 20050328
  Serious: Yes (Other)
  Sender: FDA-Public Use
  Company Number: None

PATIENT
  Age: 8 Year
  Sex: Male
  Weight: 31.7518 kg

DRUGS (1)
  1. ZYPREXA [Suspect]
     Indication: DRUG HYPERSENSITIVITY
     Dates: start: 20041114, end: 20041124

REACTIONS (2)
  - MEDICATION ERROR [None]
  - SYNCOPE [None]
